FAERS Safety Report 9339381 (Version 1)
Quarter: 2013Q2

REPORT INFORMATION
  Report Type: Spontaneous
  Country: SG (occurrence: SG)
  Receive Date: 20130610
  Receipt Date: 20130610
  Transmission Date: 20140414
  Serious: Yes (Hospitalization, Other)
  Sender: FDA-Public Use
  Company Number: SG-GILEAD-2013-0074913

PATIENT
  Age: 53 Year
  Sex: Female

DRUGS (6)
  1. VIREAD [Suspect]
     Indication: HEPATITIS B
     Dosage: 300 MG, UNK
     Route: 048
     Dates: start: 20120829, end: 20130529
  2. ADEFOVIR DIPIVOXIL [Suspect]
     Indication: HEPATITIS B
     Dosage: UNK
     Dates: start: 201105, end: 201208
  3. METFORMIN [Concomitant]
     Indication: DIABETES MELLITUS
     Dosage: 850 MG, UNK
     Route: 048
     Dates: start: 20070615
  4. GLIPIZIDE [Concomitant]
     Indication: DIABETES MELLITUS
     Dosage: 2.5 MG, UNK
     Route: 048
     Dates: start: 20070615
  5. LOSARTAN [Concomitant]
     Indication: DIABETES MELLITUS
     Dosage: 25 MG, UNK
     Route: 048
     Dates: start: 20070615
  6. TAMOXIFEN [Concomitant]
     Indication: BREAST CANCER
     Dosage: 20 MG, UNK
     Route: 048
     Dates: start: 20080310

REACTIONS (2)
  - Hypokalaemia [Not Recovered/Not Resolved]
  - Fanconi syndrome acquired [Not Recovered/Not Resolved]
